FAERS Safety Report 24315523 (Version 1)
Quarter: 2024Q3

REPORT INFORMATION
  Report Type: Spontaneous
  Country: CA (occurrence: CA)
  Receive Date: 20240913
  Receipt Date: 20240913
  Transmission Date: 20241016
  Serious: Yes (Hospitalization)
  Sender: ASTELLAS
  Company Number: CA-ASTELLAS-2023US025299

PATIENT
  Age: 7 Year
  Sex: Female
  Weight: 19 kg

DRUGS (8)
  1. PROGRAF [Suspect]
     Active Substance: TACROLIMUS
     Indication: Renal transplant
     Dosage: 1.5 MG, TWICE DAILY
     Route: 048
     Dates: start: 2022
  2. PROGRAF [Suspect]
     Active Substance: TACROLIMUS
     Indication: Transplant recipient
  3. METHYLPREDNISOLONE [Suspect]
     Active Substance: METHYLPREDNISOLONE
     Indication: Transplant recipient
     Dosage: 20 MG, TWICE DAILY
     Route: 042
     Dates: start: 2022, end: 2022
  4. CLOBAZAM [Concomitant]
     Active Substance: CLOBAZAM
     Indication: Product used for unknown indication
     Route: 048
     Dates: start: 2022, end: 2023
  5. FAMOTIDINE [Concomitant]
     Active Substance: FAMOTIDINE
     Indication: Product used for unknown indication
     Route: 042
     Dates: start: 2022, end: 2022
  6. FUROSEMIDE [Concomitant]
     Active Substance: FUROSEMIDE
     Indication: Product used for unknown indication
     Dosage: FOR ONE DOSE
     Route: 042
     Dates: start: 2022, end: 2022
  7. HYDROMORPHONE [Concomitant]
     Active Substance: HYDROMORPHONE
     Indication: Product used for unknown indication
     Dosage: BOLUS, AS NEEDED
     Route: 042
     Dates: start: 2022, end: 2022
  8. MYCOPHENOLATE MOFETIL [Concomitant]
     Active Substance: MYCOPHENOLATE MOFETIL
     Indication: Product used for unknown indication
     Route: 048
     Dates: start: 2022, end: 2023

REACTIONS (1)
  - Secondary hypertension [Recovered/Resolved]

NARRATIVE: CASE EVENT DATE: 20220101
